FAERS Safety Report 9388556 (Version 3)
Quarter: 2014Q1

REPORT INFORMATION
  Report Type: Spontaneous
  Country: US (occurrence: US)
  Receive Date: 20130708
  Receipt Date: 20140210
  Transmission Date: 20141002
  Serious: Yes (Death)
  Sender: FDA-Public Use
  Company Number: US-GLAXOSMITHKLINE-A1031110A

PATIENT
  Age: 77 Year
  Sex: Male
  Weight: 102.3 kg

DRUGS (1)
  1. AVANDIA [Suspect]
     Indication: DIABETES MELLITUS
     Route: 048
     Dates: start: 200008, end: 200011

REACTIONS (3)
  - Sudden cardiac death [Fatal]
  - Cerebrovascular accident [Unknown]
  - Myocardial infarction [Unknown]
